FAERS Safety Report 7420753-8 (Version None)
Quarter: 2011Q2

REPORT INFORMATION
  Report Type: 
  Country: None (occurrence: None)
  Receive Date: 20110418
  Receipt Date: 20110408
  Transmission Date: 20111010
  Serious: Yes (Other)
  Sender: FDA-Public Use
  Company Number: CA-ROCHE-760418

PATIENT
  Sex: Female
  Weight: 66.2 kg

DRUGS (8)
  1. ONDANSETRON [Concomitant]
     Dosage: DRUG REPORTED AS TMS ONDANSETRON
  2. OMEPRAZOLE [Concomitant]
  3. DEXAMETHASONE [Concomitant]
  4. CLONAZEPAM [Concomitant]
  5. ALERTEC [Concomitant]
  6. PREDNISONE [Concomitant]
  7. LOMUSTINE [Concomitant]
  8. BEVACIZUMAB [Suspect]
     Indication: GLIOBLASTOMA
     Dosage: FORM: INFUSION
     Route: 042
     Dates: start: 20110112

REACTIONS (5)
  - DIARRHOEA [None]
  - GLIOBLASTOMA [None]
  - NEOPLASM MALIGNANT [None]
  - BALANCE DISORDER [None]
  - FATIGUE [None]
